FAERS Safety Report 9046883 (Version 1)
Quarter: 2013Q1

REPORT INFORMATION
  Report Type: Spontaneous
  Country: FR (occurrence: FR)
  Receive Date: 20130204
  Receipt Date: 20130204
  Transmission Date: 20140127
  Serious: Yes (Hospitalization, Other)
  Sender: FDA-Public Use
  Company Number: FR-JNJFOC-20130112514

PATIENT
  Age: 60 Year
  Sex: Female

DRUGS (9)
  1. IBUPROFEN [Suspect]
     Indication: PRODUCT USED FOR UNKNOWN INDICATION
     Route: 048
  2. EUPANTOL [Suspect]
     Indication: PRODUCT USED FOR UNKNOWN INDICATION
     Route: 048
     Dates: start: 201208, end: 20121008
  3. ACETYLSALICYLIC ACID [Concomitant]
  4. CARDENSIEL [Concomitant]
     Route: 065
  5. LOVENOX [Concomitant]
     Dates: start: 20120919
  6. TRAMADOL [Concomitant]
     Route: 065
     Dates: start: 20120919
  7. SPASFON [Concomitant]
  8. VENTOLIN [Concomitant]
     Route: 065
  9. DAFALGAN [Concomitant]
     Route: 065

REACTIONS (2)
  - Pancytopenia [Recovered/Resolved]
  - Septic shock [Unknown]
